FAERS Safety Report 14446581 (Version 2)
Quarter: 2018Q2

REPORT INFORMATION
  Report Type: Spontaneous
  Country: US (occurrence: US)
  Receive Date: 20180126
  Receipt Date: 20180416
  Transmission Date: 20180711
  Serious: No
  Sender: FDA-Public Use
  Company Number: US-SHIRE-US201801672

PATIENT
  Age: 59 Year
  Sex: Female

DRUGS (1)
  1. GAMMAGARD LIQUID [Suspect]
     Active Substance: HUMAN IMMUNOGLOBULIN G
     Indication: LYME DISEASE
     Dosage: 80 G, ONCE EVERY DAY FOR TWO DAYS EVERY THREE WEEKS
     Route: 042

REACTIONS (6)
  - Headache [Unknown]
  - Product preparation error [Unknown]
  - Off label use [Unknown]
  - Nausea [Unknown]
  - Irritability [Unknown]
  - Myalgia [Unknown]

NARRATIVE: CASE EVENT DATE: 201701
